FAERS Safety Report 6866814-3 (Version None)
Quarter: 2010Q2

REPORT INFORMATION
  Report Type: 
  Country: None (occurrence: None)
  Receive Date: 20100610
  Receipt Date: 20100225
  Transmission Date: 20101027
  Serious: No
  Sender: FDA-Public Use
  Company Number: 2010SP013864

PATIENT
  Age: 60 Year
  Sex: Male
  Weight: 77.1115 kg

DRUGS (5)
  1. SAPHRIS [Suspect]
     Indication: DEPRESSION
     Dosage: 10 MG;QAM ; 20 MG;QD
     Dates: start: 20100101, end: 20100201
  2. SAPHRIS [Suspect]
     Indication: DEPRESSION
     Dosage: 10 MG;QAM ; 20 MG;QD
     Dates: start: 20100201
  3. GABAPENTIN [Concomitant]
  4. WELLBUTRIN [Concomitant]
  5. CLONAZEPAM [Concomitant]

REACTIONS (5)
  - ANXIETY [None]
  - ASTHENIA [None]
  - INAPPROPRIATE SCHEDULE OF DRUG ADMINISTRATION [None]
  - IRRITABILITY [None]
  - MOOD ALTERED [None]
